FAERS Safety Report 24287515 (Version 1)
Quarter: 2024Q3

REPORT INFORMATION
  Report Type: Spontaneous
  Country: US (occurrence: None)
  Receive Date: 20240904
  Receipt Date: 20240904
  Transmission Date: 20241016
  Serious: Yes (Hospitalization)
  Sender: Public
  Company Number: None

PATIENT
  Age: 77 Year
  Sex: Female
  Weight: 77.85 kg

DRUGS (1)
  1. REGADENOSON [Suspect]
     Active Substance: REGADENOSON
     Indication: Coronary artery disease
     Dosage: OTHER FREQUENCY : ONCE;?
     Route: 040
     Dates: start: 20240903, end: 20240903

REACTIONS (4)
  - Nausea [None]
  - Vomiting [None]
  - Back pain [None]
  - Hyperhidrosis [None]

NARRATIVE: CASE EVENT DATE: 20240903
